FAERS Safety Report 10592981 (Version 1)
Quarter: 2014Q4

REPORT INFORMATION
  Report Type: Spontaneous
  Country: US (occurrence: None)
  Receive Date: 20141118
  Receipt Date: 20141118
  Transmission Date: 20150529
  Serious: No
  Sender: FDA-Public Use
  Company Number: None

PATIENT
  Age: 62 Year
  Sex: Female
  Weight: 94.35 kg

DRUGS (1)
  1. LEVAQUIN [Suspect]
     Active Substance: LEVOFLOXACIN
     Indication: ANTIBIOTIC THERAPY
     Dosage: 5 PILLS ONCE DAILY TAKE BY MOUTH
     Route: 048
     Dates: start: 20141106, end: 20141111

REACTIONS (17)
  - Asthenia [None]
  - Wheezing [None]
  - Cough [None]
  - Dizziness [None]
  - Burning sensation [None]
  - Nightmare [None]
  - Dyspnoea [None]
  - Chest pain [None]
  - Insomnia [None]
  - Oliguria [None]
  - Hyperhidrosis [None]
  - Parkinsonism [None]
  - Limb discomfort [None]
  - Urticaria [None]
  - Increased viscosity of nasal secretion [None]
  - Thirst [None]
  - Tremor [None]

NARRATIVE: CASE EVENT DATE: 20141106
